FAERS Safety Report 10444676 (Version 1)
Quarter: 2014Q3

REPORT INFORMATION
  Report Type: Spontaneous
  Country: US (occurrence: None)
  Receive Date: 20140909
  Receipt Date: 20140909
  Transmission Date: 20150326
  Serious: Yes (Disabling)
  Sender: FDA-Public Use
  Company Number: None

PATIENT
  Age: 48 Year
  Sex: Female
  Weight: 92.99 kg

DRUGS (1)
  1. ADDERALL [Suspect]
     Active Substance: AMPHETAMINE ASPARTATE\AMPHETAMINE SULFATE\DEXTROAMPHETAMINE SACCHARATE\DEXTROAMPHETAMINE SULFATE
     Indication: SLEEP DISORDER
     Dosage: 20 MG TWICE PER DAY TWICE DAILY TAKEN BY MOUTH
     Route: 048
     Dates: start: 20130401, end: 20140908

REACTIONS (14)
  - Plantar fasciitis [None]
  - Back pain [None]
  - Arthritis [None]
  - Economic problem [None]
  - Formication [None]
  - Carpal tunnel syndrome [None]
  - Ear haemorrhage [None]
  - Epistaxis [None]
  - Rash [None]
  - Neck pain [None]
  - Tinnitus [None]
  - Rhinitis [None]
  - Pain in jaw [None]
  - Muscle spasms [None]

NARRATIVE: CASE EVENT DATE: 20140908
